FAERS Safety Report 7541620-5 (Version None)
Quarter: 2011Q2

REPORT INFORMATION
  Report Type: 
  Country: None (occurrence: None)
  Receive Date: 20110613
  Receipt Date: 20110606
  Transmission Date: 20111010
  Serious: Yes (Other)
  Sender: FDA-Public Use
  Company Number: US-TEVA-284780USA

PATIENT
  Age: 23 Year
  Sex: Male

DRUGS (1)
  1. BACLOFEN [Suspect]

REACTIONS (3)
  - ELECTROCARDIOGRAM CHANGE [None]
  - WITHDRAWAL SYNDROME [None]
  - CARDIOMYOPATHY [None]
